FAERS Safety Report 19470983 (Version 2)
Quarter: 2021Q2

REPORT INFORMATION
  Report Type: Spontaneous
  Country: US (occurrence: US)
  Receive Date: 20210628
  Receipt Date: 20210629
  Transmission Date: 20210717
  Serious: Yes (Hospitalization)
  Sender: FDA-Public Use
  Company Number: US-ABBVIE-21K-163-3964069-00

PATIENT
  Age: 79 Year
  Sex: Male
  Weight: 59.02 kg

DRUGS (6)
  1. FAMOTIDINE. [Concomitant]
     Active Substance: FAMOTIDINE
     Indication: GASTRIC DISORDER
  2. HUMIRA [Suspect]
     Active Substance: ADALIMUMAB
     Indication: CROHN^S DISEASE
     Route: 058
     Dates: start: 2019, end: 2021
  3. OMEPRAZOLE. [Concomitant]
     Active Substance: OMEPRAZOLE
     Indication: GASTRIC DISORDER
  4. HUMIRA [Suspect]
     Active Substance: ADALIMUMAB
     Route: 058
     Dates: start: 2021
  5. MODERNA COVID?19 VACCINE [Concomitant]
     Active Substance: CX-024414
     Indication: COVID-19 IMMUNISATION
     Dosage: MODERNA
     Route: 030
     Dates: start: 20210223, end: 20210223
  6. MODERNA COVID?19 VACCINE [Concomitant]
     Active Substance: CX-024414
     Dosage: MODERNA
     Route: 030
     Dates: start: 202103, end: 202103

REACTIONS (8)
  - Headache [Recovered/Resolved]
  - Neck pain [Recovered/Resolved]
  - Hypoaesthesia [Recovered/Resolved]
  - Blood calcium decreased [Unknown]
  - Headache [Recovered/Resolved]
  - Headache [Not Recovered/Not Resolved]
  - Dehydration [Recovered/Resolved]
  - Blood pressure fluctuation [Recovered/Resolved]

NARRATIVE: CASE EVENT DATE: 2021
